FAERS Safety Report 6580916-0 (Version None)
Quarter: 2010Q1

REPORT INFORMATION
  Report Type: 
  Country: None (occurrence: None)
  Receive Date: 20100215
  Receipt Date: 20100114
  Transmission Date: 20100710
  Serious: No
  Sender: FDA-Public Use
  Company Number: US-BAYER-201011379NA

PATIENT
  Age: 37 Year
  Sex: Female
  Weight: 117 kg

DRUGS (3)
  1. MIRENA [Suspect]
     Indication: DRUG USE FOR UNKNOWN INDICATION
     Route: 015
  2. MULTIPLE HERBAL SUPPLEMENTS [Concomitant]
     Indication: PHYTOTHERAPY
     Route: 065
  3. VITAMINS [Concomitant]
     Route: 065

REACTIONS (1)
  - MEDICAL DEVICE COMPLICATION [None]
